FAERS Safety Report 16037542 (Version 1)
Quarter: 2019Q1

REPORT INFORMATION
  Report Type: Spontaneous
  Country: US (occurrence: US)
  Receive Date: 20190305
  Receipt Date: 20190305
  Transmission Date: 20190418
  Serious: No
  Sender: FDA-Public Use
  Company Number: US-IMPAX LABORATORIES, LLC-2018-IPXL-03875

PATIENT
  Age: 71 Year
  Sex: Female

DRUGS (1)
  1. RYTARY [Suspect]
     Active Substance: CARBIDOPA\LEVODOPA
     Indication: PRODUCT USED FOR UNKNOWN INDICATION
     Dosage: 23.75/95MG 3 CAPULES EVERY 5 HOURS
     Route: 065
     Dates: start: 201809, end: 2018

REACTIONS (2)
  - Urinary tract infection [Unknown]
  - Adverse event [Unknown]

NARRATIVE: CASE EVENT DATE: 2018
